FAERS Safety Report 9168219 (Version 1)
Quarter: 2013Q1

REPORT INFORMATION
  Report Type: Spontaneous
  Country: PL (occurrence: PL)
  Receive Date: 20130318
  Receipt Date: 20130318
  Transmission Date: 20140127
  Serious: Yes (Hospitalization)
  Sender: FDA-Public Use
  Company Number: PL-JNJFOC-20130305022

PATIENT
  Age: 47 Year
  Sex: Female
  Weight: 83 kg

DRUGS (5)
  1. XARELTO [Suspect]
     Indication: PULMONARY EMBOLISM
     Route: 048
     Dates: start: 20120928, end: 20121015
  2. TROSPIUM CHLORIDE [Concomitant]
     Route: 048
     Dates: start: 20120928
  3. CARVEDILOL [Concomitant]
     Route: 048
     Dates: start: 20120928, end: 20121002
  4. HYDROCHLOROTHIAZIDE [Concomitant]
     Route: 048
     Dates: start: 20120928, end: 20121002
  5. PIRAMIL [Concomitant]
     Route: 048
     Dates: start: 20120928, end: 20121002

REACTIONS (7)
  - Cough [Unknown]
  - Asthenia [Unknown]
  - Blood pressure decreased [Unknown]
  - Palpitations [Unknown]
  - Myalgia [Unknown]
  - Anaemia [Unknown]
  - Tachycardia [Unknown]
